FAERS Safety Report 9469489 (Version 3)
Quarter: 2013Q3

REPORT INFORMATION
  Report Type: Spontaneous
  Country: US (occurrence: US)
  Receive Date: 20130822
  Receipt Date: 20130902
  Transmission Date: 20140515
  Serious: Yes (Hospitalization)
  Sender: FDA-Public Use
  Company Number: US-BIOGENIDEC-2013BI066610

PATIENT
  Age: 16 Year
  Sex: Female

DRUGS (2)
  1. AVONEX [Suspect]
     Indication: MULTIPLE SCLEROSIS
     Route: 030
     Dates: start: 20110621
  2. AVONEX [Suspect]
     Indication: MULTIPLE SCLEROSIS
     Route: 030
     Dates: start: 20130501, end: 20130703

REACTIONS (11)
  - Multiple sclerosis relapse [Unknown]
  - Dysuria [Unknown]
  - Speech disorder [Recovered/Resolved]
  - Mobility decreased [Recovered/Resolved]
  - Abasia [Recovered/Resolved]
  - Depression [Not Recovered/Not Resolved]
  - Local swelling [Not Recovered/Not Resolved]
  - Gait disturbance [Not Recovered/Not Resolved]
  - Fatigue [Not Recovered/Not Resolved]
  - Drug ineffective [Recovered/Resolved]
  - Muscular weakness [Not Recovered/Not Resolved]
